FAERS Safety Report 8805112 (Version 2)
Quarter: 2012Q4

REPORT INFORMATION
  Report Type: 
  Country: None (occurrence: US)
  Receive Date: 20120924
  Receipt Date: 20121213
  Transmission Date: 20130627
  Serious: No
  Sender: FDA-Public Use
  Company Number: US-ALLERGAN-1209507US

PATIENT
  Sex: Female

DRUGS (5)
  1. LUMIGAN [Suspect]
     Indication: INCREASED INTRAOCULAR PRESSURE
     Dosage: 2 Gtt, UNK
     Route: 047
     Dates: start: 2010
  2. LUMIGAN [Suspect]
     Indication: INCREASED INTRAOCULAR PRESSURE
     Route: 047
  3. BLOOD PRESSURE MEDICATION NOS [Suspect]
     Indication: DRUG USE FOR UNKNOWN INDICATION
     Dosage: UNK
  4. RESTASIS� [Concomitant]
     Indication: DRY EYES
     Dosage: 2 Gtt, bid
     Route: 047
     Dates: start: 201204
  5. PROLIA [Concomitant]
     Indication: OSTEOPOROSIS
     Dosage: UNK

REACTIONS (7)
  - Hair texture abnormal [Not Recovered/Not Resolved]
  - Hair growth abnormal [Not Recovered/Not Resolved]
  - Asthenopia [Not Recovered/Not Resolved]
  - Ear pruritus [Unknown]
  - Fatigue [Unknown]
  - Pruritus [Unknown]
  - Eye pruritus [Recovered/Resolved]
